FAERS Safety Report 5256067-4 (Version None)
Quarter: 2007Q1

REPORT INFORMATION
  Report Type: 
  Country: None (occurrence: None)
  Receive Date: 20070302
  Receipt Date: 20070302
  Transmission Date: 20070707
  Serious: Yes (Hospitalization)
  Sender: FDA-Public Use
  Company Number: None

PATIENT
  Sex: Female
  Weight: 54.4 kg

DRUGS (2)
  1. TAXOTERE [Suspect]
     Indication: BREAST CANCER
     Dosage: 75 MG/M2 Q 3 WK IV
     Route: 042
     Dates: start: 20060701, end: 20060801
  2. DOXORUBICIN [Suspect]
     Indication: BREAST CANCER
     Dosage: 50 MG/M2 Q 3 WK IV
     Route: 042
     Dates: start: 20060701, end: 20060801

REACTIONS (6)
  - ASTHENIA [None]
  - CHILLS [None]
  - CONSTIPATION [None]
  - FEBRILE NEUTROPENIA [None]
  - PYREXIA [None]
  - WHITE BLOOD CELL COUNT DECREASED [None]
